FAERS Safety Report 8600734 (Version 4)
Quarter: 2014Q3

REPORT INFORMATION
  Report Type: Report from Study
  Country: JP (occurrence: JP)
  Receive Date: 20120606
  Receipt Date: 20140911
  Transmission Date: 20150326
  Serious: Yes (Other)
  Sender: FDA-Public Use
  Company Number: PHHY2012JP047385

PATIENT
  Age: 24 Year
  Sex: Female
  Weight: 46 kg

DRUGS (32)
  1. CLOZARIL [Suspect]
     Active Substance: CLOZAPINE
     Dosage: 375 MG
     Dates: start: 20121003, end: 20130122
  2. SELENICA R [Concomitant]
     Active Substance: VALPROATE SODIUM
     Indication: SCHIZOPHRENIA, PARANOID TYPE
     Dosage: 800 MG, UNK
     Route: 048
     Dates: start: 20120209, end: 20120229
  3. BICAMOL [Concomitant]
     Active Substance: BIPERIDEN HYDROCHLORIDE
     Indication: PARKINSONISM
     Dosage: 6 MG, UNK
     Route: 048
     Dates: start: 20120229, end: 20130228
  4. CLOZARIL [Suspect]
     Active Substance: CLOZAPINE
     Dosage: 200 MG, DAILY
     Route: 048
     Dates: start: 20120323, end: 20120325
  5. CLOZARIL [Suspect]
     Active Substance: CLOZAPINE
     Dosage: 250 MG, UNK
     Route: 048
     Dates: start: 20120403, end: 20120409
  6. CLOZARIL [Suspect]
     Active Substance: CLOZAPINE
     Dosage: 325 MG, UNK
     Route: 048
     Dates: start: 20120516, end: 20120522
  7. CLOZARIL [Suspect]
     Active Substance: CLOZAPINE
     Dosage: 375 MG
     Route: 048
     Dates: start: 20120606, end: 20120703
  8. SERENACE [Concomitant]
     Active Substance: HALOPERIDOL
     Dosage: 18 MG, UNK
     Route: 048
     Dates: start: 20120229
  9. EURODIN [Concomitant]
     Active Substance: ESTAZOLAM
     Indication: SCHIZOPHRENIA, PARANOID TYPE
     Dosage: 2 MG, UNK
     Route: 048
     Dates: start: 20120229, end: 20130228
  10. CLOZARIL [Suspect]
     Active Substance: CLOZAPINE
     Dosage: 225 MG, DAILY
     Route: 048
     Dates: start: 20120326, end: 20120402
  11. CLOZARIL [Suspect]
     Active Substance: CLOZAPINE
     Dosage: 275 MG, UNK
     Route: 048
     Dates: start: 20120410, end: 20120416
  12. CLOZARIL [Suspect]
     Active Substance: CLOZAPINE
     Dosage: 100 MG,DAILY
     Route: 048
     Dates: start: 20120311, end: 20120313
  13. CLOZARIL [Suspect]
     Active Substance: CLOZAPINE
     Dosage: 350 MG, UNK
     Route: 048
     Dates: start: 20120523, end: 20120605
  14. CLOZARIL [Suspect]
     Active Substance: CLOZAPINE
     Dosage: 387.5 MG
     Route: 048
     Dates: start: 20120704, end: 20121002
  15. SERENACE [Concomitant]
     Active Substance: HALOPERIDOL
     Dosage: 09 MG, UNK
     Route: 048
     Dates: end: 20120325
  16. RISPERIDONE. [Concomitant]
     Active Substance: RISPERIDONE
     Dosage: 3 MG, UNK
     Route: 048
     Dates: end: 20120313
  17. CONTOMIN [Concomitant]
     Active Substance: CHLORPROMAZINE
     Dosage: 100 MG, UNK
     Route: 048
     Dates: end: 20120322
  18. AKINETON [Concomitant]
     Active Substance: BIPERIDEN HYDROCHLORIDE
     Indication: PARKINSONISM
     Dosage: 2 MG, UNK
     Route: 048
     Dates: start: 20120229, end: 20120326
  19. CLOZARIL [Suspect]
     Active Substance: CLOZAPINE
     Dosage: 75 MG, DAILY
     Route: 048
     Dates: start: 20120308, end: 20120310
  20. CLOZARIL [Suspect]
     Active Substance: CLOZAPINE
     Dosage: 300 MG, UNK
     Route: 048
     Dates: start: 20120417, end: 20120515
  21. CLOZARIL [Suspect]
     Active Substance: CLOZAPINE
     Dosage: 12.5 MG, DAILY
     Route: 048
     Dates: start: 20120301, end: 20120301
  22. CLOZARIL [Suspect]
     Active Substance: CLOZAPINE
     Dosage: 50 MG, DAILY
     Route: 048
     Dates: start: 20120305, end: 20120307
  23. CLOZARIL [Suspect]
     Active Substance: CLOZAPINE
     Dosage: 125 MG, DAILY
     Route: 048
     Dates: start: 20120314, end: 20120317
  24. CLOZARIL [Suspect]
     Active Substance: CLOZAPINE
     Dosage: 150 MG, DAILY
     Route: 048
     Dates: start: 20120318, end: 20120319
  25. CLOZARIL [Suspect]
     Active Substance: CLOZAPINE
     Dosage: 400 MG
     Route: 048
     Dates: start: 20130123
  26. RISPERIDONE. [Concomitant]
     Active Substance: RISPERIDONE
     Dosage: 6 MG, UNK
     Route: 048
     Dates: start: 20120229
  27. CONTOMIN [Concomitant]
     Active Substance: CHLORPROMAZINE
     Dosage: 200 MG, UNK
     Route: 048
     Dates: start: 20120229
  28. CLOZARIL [Suspect]
     Active Substance: CLOZAPINE
     Indication: SCHIZOPHRENIA
     Dosage: 350 MG, DAILY
     Route: 048
     Dates: start: 20120229
  29. CLOZARIL [Suspect]
     Active Substance: CLOZAPINE
     Dosage: 25 MG, DAILY
     Route: 048
     Dates: start: 20120302, end: 20120304
  30. CLOZARIL [Suspect]
     Active Substance: CLOZAPINE
     Dosage: 175 MG, DAILY
     Route: 048
     Dates: start: 20120320, end: 20120322
  31. SERENACE [Concomitant]
     Active Substance: HALOPERIDOL
     Dosage: 12 MG, UNK
     Route: 048
  32. ROZEREM [Concomitant]
     Active Substance: RAMELTEON
     Indication: SCHIZOPHRENIA, PARANOID TYPE
     Dosage: 8 MG, UNK
     Route: 048
     Dates: start: 20120229, end: 20130228

REACTIONS (6)
  - White blood cell count decreased [Recovered/Resolved]
  - Impulsive behaviour [Unknown]
  - Heart rate increased [Recovered/Resolved]
  - Intentional self-injury [Recovering/Resolving]
  - Platelet count decreased [Recovered/Resolved]
  - Haemoglobin decreased [Not Recovered/Not Resolved]

NARRATIVE: CASE EVENT DATE: 20120229
